FAERS Safety Report 8189435-1 (Version None)
Quarter: 2012Q1

REPORT INFORMATION
  Report Type: 
  Country: None (occurrence: None)
  Receive Date: 20120307
  Receipt Date: 20120305
  Transmission Date: 20120608
  Serious: No
  Sender: FDA-Public Use
  Company Number: US-PFIZER INC-2012058834

PATIENT
  Sex: Male

DRUGS (2)
  1. IBUPROFEN (ADVIL) [Suspect]
     Indication: MIGRAINE
     Dosage: UNK, 1X/DAY
     Route: 065
  2. ADVIL CONGESTION RELIEF [Suspect]
     Indication: MIGRAINE
     Dosage: UNK
     Route: 065
     Dates: start: 20120305

REACTIONS (1)
  - DRUG INEFFECTIVE [None]
